FAERS Safety Report 17675124 (Version 1)
Quarter: 2020Q2

REPORT INFORMATION
  Report Type: Report from Study
  Country: None (occurrence: US)
  Receive Date: 20200416
  Receipt Date: 20200416
  Transmission Date: 20200714
  Serious: Yes (Other)
  Sender: FDA-Public Use
  Company Number: US-ABBVIE-20K-163-3359152-00

PATIENT
  Age: 36 Year
  Sex: Female

DRUGS (2)
  1. HUMIRA [Suspect]
     Active Substance: ADALIMUMAB
     Indication: PRODUCT USED FOR UNKNOWN INDICATION
     Route: 058
     Dates: start: 2012, end: 2018
  2. HUMIRA [Suspect]
     Active Substance: ADALIMUMAB
     Indication: CROHN^S DISEASE
     Dosage: DAY 1
     Route: 058
     Dates: start: 20200408, end: 20200408

REACTIONS (11)
  - Anxiety [Not Recovered/Not Resolved]
  - Unevaluable event [Unknown]
  - Anal fistula [Unknown]
  - Depressed mood [Not Recovered/Not Resolved]
  - Nausea [Not Recovered/Not Resolved]
  - Maternal exposure during pregnancy [Unknown]
  - Diarrhoea [Not Recovered/Not Resolved]
  - Seasonal allergy [Not Recovered/Not Resolved]
  - Crohn^s disease [Unknown]
  - Abdominal pain upper [Not Recovered/Not Resolved]
  - Abscess [Unknown]

NARRATIVE: CASE EVENT DATE: 202003
